FAERS Safety Report 23517366 (Version 1)
Quarter: 2024Q1

REPORT INFORMATION
  Report Type: Spontaneous
  Country: US (occurrence: None)
  Receive Date: 20240212
  Receipt Date: 20240212
  Transmission Date: 20240409
  Serious: Yes (Other)
  Sender: FDA-Public Use
  Company Number: None

PATIENT
  Age: 42 Year
  Sex: Female
  Weight: 96.3 kg

DRUGS (12)
  1. PHENTERMINE [Suspect]
     Active Substance: PHENTERMINE
     Indication: Weight decreased
     Dosage: OTHER QUANTITY : 1 CAPSULE(S);?FREQUENCY : DAILY;?
     Route: 048
     Dates: start: 20221102, end: 20240212
  2. TOPIRAMATE [Suspect]
     Active Substance: TOPIRAMATE
  3. super bee complex [Concomitant]
  4. tumeric [Concomitant]
  5. APPLE CIDER VINEGAR [Concomitant]
  6. PRIMROSE OIL [Concomitant]
  7. MAGNESIUM [Concomitant]
  8. CLARITIN [Concomitant]
     Active Substance: LORATADINE
  9. nasacort spray [Concomitant]
  10. SUDAFED [Concomitant]
     Active Substance: PSEUDOEPHEDRINE HYDROCHLORIDE
  11. TYLENOL [Concomitant]
     Active Substance: ACETAMINOPHEN
  12. IBUPROFEN [Concomitant]

REACTIONS (11)
  - Tinnitus [None]
  - Headache [None]
  - Aphasia [None]
  - Disturbance in attention [None]
  - Suicidal ideation [None]
  - Sinus congestion [None]
  - Ear congestion [None]
  - Ocular discomfort [None]
  - Chills [None]
  - Feeling hot [None]
  - Menstruation irregular [None]

NARRATIVE: CASE EVENT DATE: 20240102
